FAERS Safety Report 15718902 (Version 1)
Quarter: 2018Q4

REPORT INFORMATION
  Report Type: Spontaneous
  Country: DE (occurrence: DE)
  Receive Date: 20181213
  Receipt Date: 20181213
  Transmission Date: 20190205
  Serious: Yes (Other)
  Sender: FDA-Public Use
  Company Number: DE-ELI_LILLY_AND_COMPANY-DE201812004545

PATIENT
  Age: 40 Year
  Sex: Male
  Weight: 59 kg

DRUGS (3)
  1. NOVORAPID [Concomitant]
     Active Substance: INSULIN ASPART
     Indication: PRODUCT USED FOR UNKNOWN INDICATION
     Dosage: 24 IU, DAILY
     Route: 065
     Dates: start: 2008
  2. INSULIN GLARGINE [Suspect]
     Active Substance: INSULIN GLARGINE
     Indication: TYPE 1 DIABETES MELLITUS
     Dosage: 0.5 IU/KG, DAILY
     Route: 058
     Dates: start: 20180914, end: 20180916
  3. TOUJEO [Concomitant]
     Active Substance: INSULIN GLARGINE
     Indication: PRODUCT USED FOR UNKNOWN INDICATION
     Dosage: 14 IU, DAILY
     Route: 065
     Dates: start: 201706

REACTIONS (7)
  - Palpitations [Unknown]
  - Fall [Unknown]
  - Loss of consciousness [Unknown]
  - Limb discomfort [Unknown]
  - Generalised tonic-clonic seizure [Recovered/Resolved]
  - Hypokalaemia [Unknown]
  - Blood fibrinogen decreased [Unknown]

NARRATIVE: CASE EVENT DATE: 20180915
